FAERS Safety Report 6468099-9 (Version None)
Quarter: 2009Q4

REPORT INFORMATION
  Report Type: 
  Country: None (occurrence: None)
  Receive Date: 20091127
  Receipt Date: 20091113
  Transmission Date: 20100525
  Serious: Yes (Other)
  Sender: FDA-Public Use
  Company Number: 8054996

PATIENT
  Age: 76 Year
  Sex: Male

DRUGS (4)
  1. KEPPRA [Suspect]
     Dosage: 500 MG ONCE PO
     Route: 048
     Dates: start: 20091113
  2. CLOZAPINE [Suspect]
     Dosage: 100 MG ONCE PO
     Route: 048
     Dates: start: 20091113
  3. METODURA [Suspect]
     Dosage: 50 MG ONCE PO
     Route: 048
     Dates: start: 20091113
  4. SIMVAHEXAL [Suspect]
     Dosage: 20 MG ONCE PO
     Route: 048
     Dates: start: 20091113

REACTIONS (3)
  - DRUG TOXICITY [None]
  - HYPERTENSION [None]
  - SOMNOLENCE [None]
